FAERS Safety Report 5209412-X (Version None)
Quarter: 2006Q4

REPORT INFORMATION
  Report Type: 
  Country: None (occurrence: None)
  Receive Date: 20061101
  Receipt Date: 20060621
  Transmission Date: 20070319
  Serious: No
  Sender: FDA-Public Use
  Company Number: 2006PV016142

PATIENT
  Age: 59 Year
  Sex: Female
  Weight: 122.4712 kg

DRUGS (6)
  1. SYMLIN [Suspect]
     Indication: DIABETES MELLITUS NON-INSULIN-DEPENDENT
     Dosage: SEE IMAGE
     Route: 058
     Dates: start: 20060612, end: 20060615
  2. SYMLIN [Suspect]
     Indication: DIABETES MELLITUS NON-INSULIN-DEPENDENT
     Dosage: SEE IMAGE
     Route: 058
     Dates: start: 20060616
  3. APIDRA [Concomitant]
  4. LANTUS [Concomitant]
  5. ZANTAC [Concomitant]
  6. POTASSIUM ACETATE [Concomitant]

REACTIONS (4)
  - ABDOMINAL DISTENSION [None]
  - CONDITION AGGRAVATED [None]
  - CONSTIPATION [None]
  - NAUSEA [None]
